FAERS Safety Report 10173719 (Version 1)
Quarter: 2014Q2

REPORT INFORMATION
  Report Type: Spontaneous
  Country: US (occurrence: US)
  Receive Date: 20140515
  Receipt Date: 20140515
  Transmission Date: 20141212
  Serious: No
  Sender: FDA-Public Use
  Company Number: US-B.I. PHARMACEUTICALS,INC./RIDGEFIELD-2014-BI-20370BP

PATIENT
  Age: 75 Year
  Sex: Female

DRUGS (7)
  1. SPIRIVA [Suspect]
     Indication: EMPHYSEMA
     Dosage: 18 MCG
     Route: 055
     Dates: start: 20140506
  2. AMLODIPINE [Concomitant]
     Route: 048
  3. METOPROLOL [Concomitant]
     Route: 048
  4. LORAZEPAM [Concomitant]
     Route: 048
  5. PAXIL [Concomitant]
     Route: 065
  6. TRAZODONE [Concomitant]
     Route: 048
  7. ASPIRIN [Concomitant]
     Route: 048

REACTIONS (2)
  - Fatigue [Not Recovered/Not Resolved]
  - Dyspnoea [Not Recovered/Not Resolved]
